FAERS Safety Report 19972285 (Version 2)
Quarter: 2022Q1

REPORT INFORMATION
  Report Type: Spontaneous
  Country: US (occurrence: US)
  Receive Date: 20211019
  Receipt Date: 20220112
  Transmission Date: 20220424
  Serious: Yes (Other)
  Sender: FDA-Public Use
  Company Number: US-DSJP-DSU-2021-134432AA

PATIENT
  Age: 68 Year
  Sex: Female
  Weight: 71.214 kg

DRUGS (20)
  1. ENHERTU [Suspect]
     Active Substance: FAM-TRASTUZUMAB DERUXTECAN-NXKI
     Indication: Breast cancer metastatic
     Dosage: 5.4 MG/KG/DOSE, ONCE EVERY 3 WK
     Route: 065
     Dates: start: 20210527, end: 20210527
  2. ENHERTU [Suspect]
     Active Substance: FAM-TRASTUZUMAB DERUXTECAN-NXKI
     Dosage: 5.4 MG/KG/DOSE, ONCE EVERY 3 WK
     Route: 065
     Dates: start: 20210617, end: 20210617
  3. ENHERTU [Suspect]
     Active Substance: FAM-TRASTUZUMAB DERUXTECAN-NXKI
     Dosage: 5.4 MG/KG/DOSE, ONCE EVERY 3 WK
     Route: 065
     Dates: start: 20210708, end: 20210708
  4. ENHERTU [Suspect]
     Active Substance: FAM-TRASTUZUMAB DERUXTECAN-NXKI
     Dosage: 5.4 MG/KG/DOSE, ONCE EVERY 3 WK
     Route: 065
     Dates: start: 20210729, end: 20210729
  5. ENHERTU [Suspect]
     Active Substance: FAM-TRASTUZUMAB DERUXTECAN-NXKI
     Dosage: 5.4 MG/KG/DOSE, ONCE EVERY 3 WK
     Route: 065
     Dates: start: 20210819, end: 20210819
  6. ENHERTU [Suspect]
     Active Substance: FAM-TRASTUZUMAB DERUXTECAN-NXKI
     Dosage: 5.4 MG/KG/DOSE, ONCE EVERY 3 WK
     Route: 065
     Dates: start: 20210909, end: 20210909
  7. ALIGN [Concomitant]
     Active Substance: BIFIDOBACTERIUM LONGUM SUBSP. INFANTIS
     Dosage: 4 MG, QD
     Route: 048
  8. LIDEX [Concomitant]
     Active Substance: FLUOCINONIDE
     Indication: Rash
     Dosage: UNK
     Route: 061
  9. LIDEX [Concomitant]
     Active Substance: FLUOCINONIDE
     Indication: Pruritus
  10. SYNTHROID [Concomitant]
     Active Substance: LEVOTHYROXINE SODIUM
     Indication: Product used for unknown indication
     Dosage: 1 TABLET, QD
     Route: 048
  11. LIDOCAINE HYDROCHLORIDE;PRILOCAINE [Concomitant]
     Indication: Pain
     Dosage: UNK
     Route: 061
  12. IMODIUM A-D [Concomitant]
     Active Substance: LOPERAMIDE HYDROCHLORIDE
     Indication: Product used for unknown indication
     Dosage: 2 MG (4X), QD
     Route: 048
  13. CENTRUM JR [MINERALS NOS;VITAMINS NOS] [Concomitant]
     Indication: Product used for unknown indication
     Dosage: 1 CAPSULE, NIGHTLY
     Route: 048
  14. MIRALAX [Concomitant]
     Active Substance: POLYETHYLENE GLYCOL 3350
     Indication: Product used for unknown indication
     Dosage: 17 G, QD
     Route: 048
  15. DEXAMETHASONE [Concomitant]
     Active Substance: DEXAMETHASONE
     Indication: Product used for unknown indication
     Dosage: 1.5 MG, QD (21 DAYS)
     Route: 048
  16. DEXAMETHASONE [Concomitant]
     Active Substance: DEXAMETHASONE
     Dosage: 1 MG, QD (14 DAYS)
     Route: 048
  17. DEXAMETHASONE [Concomitant]
     Active Substance: DEXAMETHASONE
     Dosage: 0.5 MG, QD (14 DAYS)
     Route: 048
  18. KENALOG [Concomitant]
     Active Substance: TRIAMCINOLONE ACETONIDE
     Indication: Rash
     Dosage: 2 UNK, BID
     Route: 061
  19. CARMOL [UREA] [Concomitant]
     Indication: Product used for unknown indication
     Dosage: UNK, PRN
     Route: 065
  20. ZOLEDRONIC ACID [Interacting]
     Active Substance: ZOLEDRONIC ACID
     Indication: Product used for unknown indication
     Dosage: UNK (INFUSE INTO A VENOUS CATHETER)
     Route: 042

REACTIONS (4)
  - Interstitial lung disease [Recovering/Resolving]
  - Constipation [Unknown]
  - Pruritus [Unknown]
  - Nocturia [Unknown]

NARRATIVE: CASE EVENT DATE: 20211004
